FAERS Safety Report 7032119-3 (Version None)
Quarter: 2010Q4

REPORT INFORMATION
  Report Type: 
  Country: None (occurrence: None)
  Receive Date: 20101007
  Receipt Date: 20091113
  Transmission Date: 20110411
  Serious: Yes (Hospitalization)
  Sender: FDA-Public Use
  Company Number: DE-BRISTOL-MYERS SQUIBB COMPANY-14871974

PATIENT
  Age: 58 Year
  Sex: Female
  Weight: 119 kg

DRUGS (3)
  1. CETUXIMAB [Suspect]
     Indication: NON-SMALL CELL LUNG CANCER
     Dosage: ON DAY 1 OF CYCLE;02JUN-10AUG09(70D); REDUCED TO 250MG/M2(02SEP09);LAST DOSE:04NOV09
     Route: 042
     Dates: start: 20090602, end: 20091214
  2. CISPLATIN [Suspect]
     Indication: NON-SMALL CELL LUNG CANCER
     Dosage: WITHDRAWN ON 14DEC09
     Route: 042
     Dates: start: 20090602, end: 20090810
  3. ALIMTA [Suspect]
     Indication: NON-SMALL CELL LUNG CANCER
     Dosage: 02JUN-10AUG (70D), 500MG/M2(02SEP09-ONG), LAST DOSE ON 04NOV2009
     Route: 042
     Dates: start: 20090602, end: 20091214

REACTIONS (3)
  - HAEMOGLOBIN DECREASED [None]
  - OEDEMA [None]
  - STASIS DERMATITIS [None]
